FAERS Safety Report 15831017 (Version 1)
Quarter: 2019Q1

REPORT INFORMATION
  Report Type: Spontaneous
  Country: GB (occurrence: GB)
  Receive Date: 20190116
  Receipt Date: 20190116
  Transmission Date: 20190417
  Serious: Yes (Hospitalization)
  Sender: FDA-Public Use
  Company Number: GB-DEXPHARM-20190014

PATIENT
  Age: 85 Year
  Sex: Female

DRUGS (12)
  1. GLICLAZIDE [Concomitant]
     Active Substance: GLICLAZIDE
  2. ACETYLSALICYLIC ACID [Concomitant]
     Active Substance: ASPIRIN
     Dosage: NIGHT - CONTINUED DUE TO CO-MORBIDITIES. HR UPPER END OF NORMAL ON THIS.
  3. AMLODIPINE [Interacting]
     Active Substance: AMLODIPINE BESYLATE
     Indication: HYPERTENSION
     Dosage: NIGHT - CONTINUED DUE TO CO-MORBIDITIES. HR UPPER END OF NORMAL ON THIS.
     Route: 048
  4. ATORVASTATIN [Concomitant]
     Active Substance: ATORVASTATIN
     Dosage: NIGHT - CONTINUED DUE TO CO-MORBIDITIES. HR UPPER END OF NORMAL ON THIS.
  5. NICORANDIL [Suspect]
     Active Substance: NICORANDIL
     Indication: ANGINA PECTORIS
     Route: 048
  6. ATENOLOL. [Interacting]
     Active Substance: ATENOLOL
     Indication: HYPERTENSION
     Route: 048
  7. CANDESARTAN. [Suspect]
     Active Substance: CANDESARTAN
     Indication: HYPERTENSION
     Dosage: NIGHT - CONTINUED DUE TO CO-MORBIDITIES. HR UPPER END OF NORMAL ON THIS.
     Route: 048
  8. ALOGLIPTIN. [Concomitant]
     Active Substance: ALOGLIPTIN
     Dosage: NIGHT - CONTINUED DUE TO CO-MORBIDITIES. HR UPPER END OF NORMAL ON THIS.
  9. METFORMIN [Concomitant]
     Active Substance: METFORMIN HYDROCHLORIDE
  10. LANSOPRAZOLE. [Concomitant]
     Active Substance: LANSOPRAZOLE
     Dosage: NIGHT - CONTINUED DUE TO CO-MORBIDITIES. HR UPPER END OF NORMAL ON THIS.
  11. ISOSORBIDE MONONITRATE CHEMYDUR XL [Suspect]
     Active Substance: ISOSORBIDE MONONITRATE
     Indication: ANGINA PECTORIS
     Dosage: NIGHT - CONTINUED DUE TO CO-MORBIDITIES. HR UPPER END OF NORMAL ON THIS.
     Route: 048
  12. TRIMETHOPRIM. [Concomitant]
     Active Substance: TRIMETHOPRIM

REACTIONS (2)
  - Potentiating drug interaction [Recovered/Resolved]
  - Circulatory collapse [Recovered/Resolved]

NARRATIVE: CASE EVENT DATE: 20181118
